FAERS Safety Report 8563552-6 (Version None)
Quarter: 2012Q3

REPORT INFORMATION
  Report Type: 
  Country: None (occurrence: None)
  Receive Date: 20120803
  Receipt Date: 20120723
  Transmission Date: 20120928
  Serious: Yes (Other)
  Sender: FDA-Public Use
  Company Number: AU-AMGEN-AUSSP2012027037

PATIENT
  Age: 61 Year
  Sex: Female
  Weight: 79 kg

DRUGS (5)
  1. ARAVA [Concomitant]
     Indication: RHEUMATOID ARTHRITIS
     Dosage: 20MG, EVERY 2ND DAY
     Route: 048
     Dates: start: 20060421
  2. ATACAND [Concomitant]
     Indication: BLOOD PRESSURE
     Dosage: 8 MG, 1X/DAY
     Route: 048
  3. ENBREL [Suspect]
     Indication: RHEUMATOID ARTHRITIS
     Dosage: 50 MG, UNK
     Route: 058
     Dates: start: 20070403
  4. FOSAMAX PLUS D [Concomitant]
     Indication: OSTEOPENIA
     Dosage: 10 MG, WEEKLY
     Route: 048
     Dates: start: 20040812
  5. TENORMIN [Concomitant]
     Indication: BLOOD PRESSURE
     Dosage: 25 MG, 1X/DAY
     Route: 048

REACTIONS (5)
  - RED BLOOD CELL SEDIMENTATION RATE INCREASED [None]
  - RHEUMATOID ARTHRITIS [None]
  - INCORRECT STORAGE OF DRUG [None]
  - C-REACTIVE PROTEIN INCREASED [None]
  - DRUG INEFFECTIVE [None]
